FAERS Safety Report 5819306-4 (Version None)
Quarter: 2008Q3

REPORT INFORMATION
  Report Type: 
  Country: None (occurrence: None)
  Receive Date: 20080723
  Receipt Date: 20080717
  Transmission Date: 20090109
  Serious: Yes (Hospitalization, Disabling)
  Sender: FDA-Public Use
  Company Number: US-MERCK-0705USA01548

PATIENT
  Age: 81 Year
  Sex: Female

DRUGS (11)
  1. FOSAMAX [Suspect]
     Indication: OSTEOPOROSIS
     Route: 048
     Dates: start: 20030801, end: 20070101
  2. FOSAMAX [Suspect]
     Route: 048
     Dates: start: 20020101
  3. CELEBREX [Concomitant]
     Route: 065
     Dates: start: 20000101, end: 20060101
  4. AVANDIA [Concomitant]
     Route: 065
  5. DYNACIRC [Concomitant]
     Route: 048
  6. NEXIUM [Concomitant]
     Route: 048
  7. PAXIL [Concomitant]
     Route: 048
  8. ASPIRIN [Concomitant]
     Route: 048
  9. VITAMINS (UNSPECIFIED) [Concomitant]
     Route: 048
  10. ARIMIDEX [Concomitant]
     Route: 065
  11. ZETIA [Concomitant]
     Route: 048

REACTIONS (25)
  - ADVERSE DRUG REACTION [None]
  - ADVERSE EVENT [None]
  - ANXIETY [None]
  - ARTHRALGIA [None]
  - BACK DISORDER [None]
  - BACK PAIN [None]
  - CARDIAC MURMUR [None]
  - CATARACT [None]
  - CONSTIPATION [None]
  - FATIGUE [None]
  - HEADACHE [None]
  - MUSCULOSKELETAL DISCOMFORT [None]
  - MUSCULOSKELETAL PAIN [None]
  - NAUSEA [None]
  - NERVOUSNESS [None]
  - ORAL DISORDER [None]
  - PAIN IN JAW [None]
  - PANIC ATTACK [None]
  - RESORPTION BONE INCREASED [None]
  - RHEUMATOID ARTHRITIS [None]
  - SINUS DISORDER [None]
  - SJOGREN'S SYNDROME [None]
  - STOMATITIS [None]
  - TOOTH LOSS [None]
  - VISUAL ACUITY REDUCED [None]
